FAERS Safety Report 5961571-7 (Version None)
Quarter: 2008Q4

REPORT INFORMATION
  Report Type: 
  Country: None (occurrence: None)
  Receive Date: 20081121
  Receipt Date: 20081114
  Transmission Date: 20090506
  Serious: Yes (Other)
  Sender: FDA-Public Use
  Company Number: B0546413A

PATIENT
  Age: 69 Year
  Sex: Female

DRUGS (1)
  1. AMOXICILLIN [Suspect]
     Indication: ABSCESS
     Dosage: 1500MG PER DAY
     Route: 048

REACTIONS (2)
  - ARTHRALGIA [None]
  - DIARRHOEA [None]
